FAERS Safety Report 9944461 (Version 1)
Quarter: 2014Q1

REPORT INFORMATION
  Report Type: Report from Study
  Country: US (occurrence: US)
  Receive Date: 20140303
  Receipt Date: 20140303
  Transmission Date: 20141002
  Serious: No
  Sender: FDA-Public Use
  Company Number: US-ABBVIE-13P-163-1053814-00

PATIENT
  Age: 52 Year
  Sex: Female

DRUGS (2)
  1. HUMIRA [Suspect]
     Indication: CROHN^S DISEASE
     Dosage: FOUR 40MG PENS DAY 1
     Route: 058
     Dates: start: 201301
  2. HUMIRA [Suspect]
     Dosage: TWO 40MG PENS DAY 15

REACTIONS (2)
  - Sensory disturbance [Unknown]
  - Pruritus generalised [Unknown]
